FAERS Safety Report 5577259-0 (Version None)
Quarter: 2007Q4

REPORT INFORMATION
  Report Type: 
  Country: None (occurrence: None)
  Receive Date: 20071228
  Receipt Date: 20071217
  Transmission Date: 20080405
  Serious: No
  Sender: FDA-Public Use
  Company Number: HK-MERCK-0712HKG00009

PATIENT
  Age: 79 Year
  Sex: Female

DRUGS (5)
  1. DECADRON [Suspect]
     Indication: IDIOPATHIC THROMBOCYTOPENIC PURPURA
     Route: 065
     Dates: start: 20050301, end: 20050301
  2. GLOBULIN, IMMUNE [Concomitant]
     Route: 042
     Dates: start: 20050301, end: 20050301
  3. VINCRISTINE SULFATE [Concomitant]
     Route: 065
     Dates: start: 20050301
  4. CYCLOSPORINE [Concomitant]
     Route: 065
     Dates: start: 20050301
  5. DANAZOL [Concomitant]
     Route: 065
     Dates: start: 19970101, end: 20050301

REACTIONS (2)
  - IDIOPATHIC THROMBOCYTOPENIC PURPURA [None]
  - TREATMENT FAILURE [None]
